FAERS Safety Report 8591105-2 (Version None)
Quarter: 2012Q3

REPORT INFORMATION
  Report Type: 
  Country: None (occurrence: None)
  Receive Date: 20120813
  Receipt Date: 20120730
  Transmission Date: 20120928
  Serious: Yes (Hospitalization, Other)
  Sender: FDA-Public Use
  Company Number: CHPA2012US017148

PATIENT
  Sex: Female

DRUGS (3)
  1. EXCEDRIN SINUS HEADACHE [Suspect]
     Indication: NASAL CONGESTION
     Dosage: UNK, UNK
     Route: 048
     Dates: start: 20120501
  2. REBIF [Suspect]
     Dosage: 44 UG, TIW
     Route: 058
     Dates: start: 20101124
  3. DRUG THERAPY NOS [Concomitant]
     Indication: HEADACHE

REACTIONS (6)
  - FEELING ABNORMAL [None]
  - SINUSITIS [None]
  - ERYTHEMA [None]
  - LOSS OF CONSCIOUSNESS [None]
  - PARANOIA [None]
  - VOMITING [None]
